FAERS Safety Report 24561201 (Version 1)
Quarter: 2024Q4

REPORT INFORMATION
  Report Type: Spontaneous
  Country: ES (occurrence: ES)
  Receive Date: 20241029
  Receipt Date: 20241029
  Transmission Date: 20250115
  Serious: Yes (Death)
  Sender: MYLAN
  Company Number: ES-MYLANLABS-2024M1098051

PATIENT
  Age: 67 Year
  Sex: Male

DRUGS (1)
  1. DOCETAXEL [Suspect]
     Active Substance: DOCETAXEL
     Indication: Breast cancer male
     Dosage: UNK
     Route: 065

REACTIONS (1)
  - Drug ineffective [Fatal]
